FAERS Safety Report 6415259-9 (Version None)
Quarter: 2009Q4

REPORT INFORMATION
  Report Type: 
  Country: None (occurrence: None)
  Receive Date: 20091027
  Receipt Date: 20091020
  Transmission Date: 20100525
  Serious: Yes (Death, Hospitalization, Disabling)
  Sender: FDA-Public Use
  Company Number: US-CELGENEUS-163-20785-09080605

PATIENT
  Sex: Male

DRUGS (2)
  1. THALOMID [Suspect]
     Route: 048
     Dates: start: 20090401, end: 20090701
  2. THALOMID [Suspect]

REACTIONS (3)
  - GRAFT VERSUS HOST DISEASE [None]
  - ILEUS [None]
  - NO THERAPEUTIC RESPONSE [None]
